FAERS Safety Report 19227605 (Version 1)
Quarter: 2021Q2

REPORT INFORMATION
  Report Type: Spontaneous
  Country: US (occurrence: US)
  Receive Date: 20210506
  Receipt Date: 20210506
  Transmission Date: 20210717
  Serious: Yes (Other)
  Sender: FDA-Public Use
  Company Number: US-BAYER-2021-134945

PATIENT
  Sex: Female

DRUGS (2)
  1. JIVI [Suspect]
     Active Substance: DAMOCTOCOG ALFA PEGOL
     Indication: FACTOR VIII DEFICIENCY
     Dosage: INFUSE ~2800 UNITS (+/? 10%) AS NEEDED UNTIL BLEEDING IS CONTROLLED
     Route: 042
     Dates: start: 201811
  2. JIVI [Suspect]
     Active Substance: DAMOCTOCOG ALFA PEGOL
     Indication: FACTOR VIII DEFICIENCY
     Dosage: INFUSE ~2100 UNITS (+/? 10%) EVERY MONDAY AND THURSDAY
     Route: 042
     Dates: start: 201811

REACTIONS (4)
  - Haemarthrosis [Unknown]
  - Product dose omission issue [Unknown]
  - Rheumatoid arthritis [Unknown]
  - Injection site bruising [Unknown]
